FAERS Safety Report 20611276 (Version 1)
Quarter: 2022Q1

REPORT INFORMATION
  Report Type: Spontaneous
  Country: US (occurrence: US)
  Receive Date: 20220318
  Receipt Date: 20220318
  Transmission Date: 20220423
  Serious: Yes (Other)
  Sender: FDA-Public Use
  Company Number: US-drreddys-SPO/USA/22/0147634

PATIENT
  Age: 28 Year
  Sex: Female

DRUGS (1)
  1. ZENATANE [Suspect]
     Active Substance: ISOTRETINOIN
     Indication: Product used for unknown indication
     Dosage: RMA ISSUE DATE: 28 OCTOBER 2021 07:49:47 PM, 05 FEBRUARY 2022 09:45:32 AM

REACTIONS (4)
  - Anxiety [Unknown]
  - Depression [Unknown]
  - Self-injurious ideation [Unknown]
  - Suicidal ideation [Unknown]
